FAERS Safety Report 9555994 (Version 1)
Quarter: 2013Q3

REPORT INFORMATION
  Report Type: Spontaneous
  Country: US (occurrence: None)
  Receive Date: 20130724
  Receipt Date: 20130724
  Transmission Date: 20140515
  Serious: Yes (Other)
  Sender: FDA-Public Use
  Company Number: PHEH2013US007685

PATIENT
  Age: 54 Year
  Sex: Female

DRUGS (4)
  1. GILENYA (FINGOLIMOD) CAPSULE [Suspect]
     Dates: start: 20130104, end: 20130327
  2. IMITREX (SUMATRIPTAN SUCCINATE) [Concomitant]
  3. ACTIVELLA (ESTRADIOL, NORETHISTERONE ACETATE) [Concomitant]
  4. VITAMIN D3 ((COLECALCIFEROL) [Concomitant]

REACTIONS (3)
  - Fatigue [None]
  - Product physical issue [None]
  - Incorrect dose administered [None]
